FAERS Safety Report 8007055 (Version 3)
Quarter: 2013Q3

REPORT INFORMATION
  Report Type: Report from Study
  Country: SG (occurrence: SG)
  Receive Date: 20110623
  Receipt Date: 20130930
  Transmission Date: 20140515
  Serious: Yes (Hospitalization, Other)
  Sender: FDA-Public Use
  Company Number: PHHY2011SG42393

PATIENT
  Age: 71 Year
  Sex: Male

DRUGS (5)
  1. GLIVEC [Suspect]
     Indication: CHRONIC MYELOID LEUKAEMIA
     Dosage: 400 MG, DAILY
     Route: 048
     Dates: start: 20040430
  2. SIMVASTATIN [Concomitant]
     Dosage: 20 MG
     Route: 048
  3. LOSARTAN POTASSIUM [Concomitant]
     Dosage: UNK UKN, UNK
     Route: 048
  4. MIXTARD 30/70 [Concomitant]
     Dosage: UNK UKN, UNK
  5. NIFEDIPINE [Concomitant]
     Dosage: 30 MG
     Route: 048

REACTIONS (3)
  - Chronic obstructive pulmonary disease [Recovering/Resolving]
  - Dyspnoea [Recovering/Resolving]
  - Infective exacerbation of chronic obstructive airways disease [Recovering/Resolving]
